FAERS Safety Report 11807844 (Version 1)
Quarter: 2015Q4

REPORT INFORMATION
  Report Type: Report from Study
  Country: US (occurrence: US)
  Receive Date: 20151207
  Receipt Date: 20151207
  Transmission Date: 20160305
  Serious: Yes (Other)
  Sender: FDA-Public Use
  Company Number: US-GILEAD-2015-0177851

PATIENT
  Age: 57 Year
  Sex: Female

DRUGS (1)
  1. LEDIPASVIR/SOFOSBUVIR [Suspect]
     Active Substance: LEDIPASVIR\SOFOSBUVIR
     Indication: CHRONIC HEPATITIS C
     Dosage: 1 DF, UNK
     Route: 048

REACTIONS (16)
  - Kidney infection [Unknown]
  - Unevaluable event [Unknown]
  - Nausea [Unknown]
  - Asthenia [Unknown]
  - Nasopharyngitis [Unknown]
  - Pyrexia [Unknown]
  - Cystitis [Unknown]
  - Fatigue [Unknown]
  - Chills [Unknown]
  - Dyspnoea [Unknown]
  - Dermal cyst [Unknown]
  - Headache [Unknown]
  - Pollakiuria [Unknown]
  - Furuncle [Unknown]
  - Faeces discoloured [Unknown]
  - Abdominal discomfort [Unknown]
